FAERS Safety Report 5363732-7 (Version None)
Quarter: 2007Q2

REPORT INFORMATION
  Report Type: 
  Country: None (occurrence: None)
  Receive Date: 20070618
  Receipt Date: 20070618
  Transmission Date: 20071010
  Serious: No
  Sender: FDA-Public Use
  Company Number: None

PATIENT
  Age: 41 Year
  Sex: Female
  Weight: 92.0802 kg

DRUGS (1)
  1. VALPROIC ACID [Suspect]
     Dosage: 1000 MG DAILY PO
     Route: 048

REACTIONS (1)
  - ALOPECIA [None]
